FAERS Safety Report 7897470-3 (Version None)
Quarter: 2011Q4

REPORT INFORMATION
  Report Type: 
  Country: None (occurrence: None)
  Receive Date: 20111107
  Receipt Date: 20111028
  Transmission Date: 20120403
  Serious: Yes (Other)
  Sender: FDA-Public Use
  Company Number: GB-JNJFOC-20111101561

PATIENT
  Age: 67 Year
  Sex: Female

DRUGS (9)
  1. XARELTO [Suspect]
     Indication: POSTOPERATIVE CARE
     Route: 048
  2. XARELTO [Suspect]
     Route: 048
     Dates: start: 20110930
  3. XARELTO [Suspect]
     Route: 048
     Dates: start: 20110930
  4. LANSOPRAZOLE [Concomitant]
  5. MELOXICAM [Concomitant]
  6. SIMVASTATIN [Concomitant]
  7. LEVOTHYROXINE SODIUM [Concomitant]
  8. XARELTO [Suspect]
     Indication: HIP ARTHROPLASTY
     Route: 048
  9. CLOPIDOGREL [Concomitant]

REACTIONS (3)
  - RASH ERYTHEMATOUS [None]
  - PRURITUS [None]
  - ASTHENIA [None]
